FAERS Safety Report 4447792-3 (Version None)
Quarter: 2004Q3

REPORT INFORMATION
  Report Type: 
  Country: None (occurrence: None)
  Receive Date: 20040729
  Receipt Date: 20040302
  Transmission Date: 20050211
  Serious: Yes (Hospitalization)
  Sender: FDA-Public Use
  Company Number: IGH/04/05/UNK

PATIENT
  Age: 14 Year
  Sex: Female

DRUGS (2)
  1. IMMUNE GLOBULIN INTRAVENOUS (HUMAN)(IMMUNOGLOBULIN HUMAN NORMAL) [Suspect]
     Indication: THROMBOCYTOPENIC PURPURA
     Dosage: 1000 MG/KG ONCE IV
     Route: 042
  2. PREDNISOLONE [Concomitant]

REACTIONS (1)
  - HEADACHE [None]
